FAERS Safety Report 17153899 (Version 1)
Quarter: 2019Q4

REPORT INFORMATION
  Report Type: Spontaneous
  Country: US (occurrence: US)
  Receive Date: 20191213
  Receipt Date: 20191213
  Transmission Date: 20200122
  Serious: Yes (Hospitalization)
  Sender: FDA-Public Use
  Company Number: US-BAUSCH-BL-2019-063644

PATIENT
  Age: 61 Year
  Sex: Female
  Weight: 71.73 kg

DRUGS (5)
  1. ATENOLOL. [Concomitant]
     Active Substance: ATENOLOL
     Indication: BLOOD PRESSURE MEASUREMENT
  2. ASPIRIN. [Concomitant]
     Active Substance: ASPIRIN
     Indication: PRODUCT USED FOR UNKNOWN INDICATION
  3. COSOPT [Suspect]
     Active Substance: DORZOLAMIDE HYDROCHLORIDE\TIMOLOL MALEATE
     Indication: INTRAOCULAR PRESSURE INCREASED
     Dosage: STARTED ABOUT A MONTH BEFORE INITIAL REPORT, AT 3 DROPS A DAY IN RIGHT EYE, USED FOR TWO ABOUT WEEKS
     Route: 047
     Dates: start: 201911, end: 2019
  4. PANTOPRAZOLE [Concomitant]
     Active Substance: PANTOPRAZOLE
     Indication: GASTROOESOPHAGEAL REFLUX DISEASE
  5. VYZULTA [Suspect]
     Active Substance: LATANOPROSTENE BUNOD
     Indication: INTRAOCULAR PRESSURE INCREASED
     Dosage: ONE DROP IN BOTH EYES AT NIGHT AS DIRECTED (USING SAMPLES FROM DOCTOR) AND USED PROBABLY ONLY TWICE
     Route: 047
     Dates: start: 20191105, end: 201911

REACTIONS (20)
  - Visual field defect [Recovered/Resolved]
  - Anxiety [Recovered/Resolved]
  - Yawning [Recovered/Resolved]
  - Palpitations [Recovered/Resolved]
  - Diarrhoea [Recovered/Resolved]
  - Chills [Not Recovered/Not Resolved]
  - Depression [Recovered/Resolved]
  - Photopsia [Recovered/Resolved]
  - Eye irritation [Recovering/Resolving]
  - Hypertension [Recovered/Resolved]
  - Speech disorder [Not Recovered/Not Resolved]
  - Abdominal pain [Recovered/Resolved]
  - Pruritus [Recovered/Resolved]
  - Nail discolouration [Recovered/Resolved]
  - Ill-defined disorder [Recovered/Resolved]
  - Hypoaesthesia [Not Recovered/Not Resolved]
  - Paraesthesia [Not Recovered/Not Resolved]
  - Tinnitus [Not Recovered/Not Resolved]
  - Headache [Recovered/Resolved]
  - Arthralgia [Recovered/Resolved]

NARRATIVE: CASE EVENT DATE: 2019
